FAERS Safety Report 18819853 (Version 1)
Quarter: 2021Q1

REPORT INFORMATION
  Report Type: Spontaneous
  Country: US (occurrence: US)
  Receive Date: 20210202
  Receipt Date: 20210202
  Transmission Date: 20210419
  Serious: No
  Sender: FDA-Public Use
  Company Number: US-ASTRAZENECA-2021A010340

PATIENT
  Sex: Female

DRUGS (2)
  1. GLIMEPIRIDE. [Concomitant]
     Active Substance: GLIMEPIRIDE
  2. BYDUREON BCISE [Suspect]
     Active Substance: EXENATIDE
     Indication: HYPERGLYCAEMIA
     Route: 065
     Dates: start: 20210114

REACTIONS (4)
  - Injection site injury [Unknown]
  - Product label issue [Unknown]
  - Incorrect dose administered by device [Unknown]
  - Injection site extravasation [Unknown]
